FAERS Safety Report 10030882 (Version 2)
Quarter: 2014Q1

REPORT INFORMATION
  Report Type: Spontaneous
  Country: US (occurrence: US)
  Receive Date: 20140323
  Receipt Date: 20140323
  Transmission Date: 20141002
  Serious: No
  Sender: FDA-Public Use
  Company Number: US-ALLERGAN-1316478US

PATIENT
  Sex: Female

DRUGS (3)
  1. LATISSE 0.03% [Suspect]
     Indication: GROWTH OF EYELASHES
     Dosage: 2 GTT, QHS
     Route: 061
  2. PNV [Concomitant]
     Indication: SUPPLEMENTATION THERAPY
     Dosage: UNK
  3. VISINE                             /00256502/ [Concomitant]
     Indication: UNEVALUABLE EVENT
     Dosage: UNK
     Route: 047

REACTIONS (3)
  - Wrong technique in drug usage process [Unknown]
  - Drug ineffective [Unknown]
  - Madarosis [Unknown]
